FAERS Safety Report 10486571 (Version 2)
Quarter: 2014Q4

REPORT INFORMATION
  Report Type: Spontaneous
  Country: US (occurrence: US)
  Receive Date: 20141001
  Receipt Date: 20141001
  Transmission Date: 20150528
  Serious: No
  Sender: FDA-Public Use
  Company Number: US-KOWA-2013S1002095

PATIENT
  Sex: Female
  Weight: 61 kg

DRUGS (10)
  1. EFFIENT [Suspect]
     Active Substance: PRASUGREL HYDROCHLORIDE
     Indication: MYOCARDIAL INFARCTION
     Route: 048
     Dates: start: 20130930
  2. SYNTHROID [Concomitant]
     Active Substance: LEVOTHYROXINE SODIUM
  3. LOSARTAN [Concomitant]
     Active Substance: LOSARTAN
  4. COREG [Concomitant]
     Active Substance: CARVEDILOL
  5. BABY ASPIRIN [Concomitant]
     Active Substance: ASPIRIN
  6. LISINOPRIL. [Concomitant]
     Active Substance: LISINOPRIL
  7. HYDROCHLOROTHIAZIDE. [Concomitant]
     Active Substance: HYDROCHLOROTHIAZIDE
  8. LIVALO [Suspect]
     Active Substance: PITAVASTATIN CALCIUM
     Indication: BLOOD CHOLESTEROL
     Route: 048
     Dates: start: 20131014
  9. ZETIA [Concomitant]
     Active Substance: EZETIMIBE
     Dates: end: 20140417
  10. EFFIENT [Suspect]
     Active Substance: PRASUGREL HYDROCHLORIDE
     Indication: STENT PLACEMENT
     Route: 048
     Dates: start: 20130930

REACTIONS (4)
  - Back pain [Recovering/Resolving]
  - Epistaxis [Recovered/Resolved]
  - Contusion [Not Recovered/Not Resolved]
  - Pain in extremity [Not Recovered/Not Resolved]

NARRATIVE: CASE EVENT DATE: 201310
